FAERS Safety Report 4428048-1 (Version None)
Quarter: 2004Q3

REPORT INFORMATION
  Report Type: 
  Country: None (occurrence: None)
  Receive Date: 20040813
  Receipt Date: 20040809
  Transmission Date: 20050211
  Serious: Yes (Other)
  Sender: FDA-Public Use
  Company Number: HQWYE293521JUL04

PATIENT
  Age: 28 Year
  Sex: Female
  Weight: 54.48 kg

DRUGS (8)
  1. EFFEXOR XR [Suspect]
     Indication: ANXIETY
     Dosage: ORAL : 600 MG  1X PER 1 DAY, ORAL : 450 MG 1X PER 1 DAY, ORAL
     Route: 048
     Dates: start: 20020101
  2. EFFEXOR XR [Suspect]
     Indication: DEPRESSION
     Dosage: ORAL : 600 MG  1X PER 1 DAY, ORAL : 450 MG 1X PER 1 DAY, ORAL
     Route: 048
     Dates: start: 20020101
  3. EFFEXOR XR [Suspect]
     Indication: PANIC DISORDER
     Dosage: ORAL : 600 MG  1X PER 1 DAY, ORAL : 450 MG 1X PER 1 DAY, ORAL
     Route: 048
     Dates: start: 20020101
  4. DEPAKOTE [Concomitant]
  5. PROVIGIL [Concomitant]
  6. ACIPHEX [Concomitant]
  7. SEROQUEL [Concomitant]
  8. ORAL CONTRACEPTIVE NOS [Concomitant]

REACTIONS (7)
  - ANXIETY [None]
  - FALSE POSITIVE LABORATORY RESULT [None]
  - HYPERTENSION [None]
  - PANIC ATTACK [None]
  - PHAEOCHROMOCYTOMA [None]
  - TACHYCARDIA [None]
  - WEIGHT DECREASED [None]
